FAERS Safety Report 26161203 (Version 1)
Quarter: 2025Q4

REPORT INFORMATION
  Report Type: Spontaneous
  Country: EU (occurrence: EU)
  Receive Date: 20251216
  Receipt Date: 20251216
  Transmission Date: 20260117
  Serious: Yes (Other)
  Sender: TEVA
  Company Number: None

PATIENT
  Age: 49 Year
  Sex: Female
  Weight: 70 kg

DRUGS (1)
  1. MIRTAZAPINE [Suspect]
     Active Substance: MIRTAZAPINE
     Indication: Sleep disorder
     Dosage: STRENGTH 15-30 MG, 1 TABLET PER DAY
     Route: 065
     Dates: start: 20210802, end: 20250602

REACTIONS (1)
  - Vasculitis [Recovered/Resolved]

NARRATIVE: CASE EVENT DATE: 20230710
